FAERS Safety Report 10208505 (Version 1)
Quarter: 2014Q2

REPORT INFORMATION
  Report Type: Spontaneous
  Country: GB (occurrence: GB)
  Receive Date: 20140530
  Receipt Date: 20140530
  Transmission Date: 20141212
  Serious: Yes (Other)
  Sender: FDA-Public Use
  Company Number: GB-GLAXOSMITHKLINE-B0996602A

PATIENT
  Sex: Male

DRUGS (1)
  1. SALBUTAMOL [Suspect]
     Indication: ASTHMA
     Route: 055

REACTIONS (2)
  - Asthma [Recovered/Resolved]
  - Drug effect decreased [Not Recovered/Not Resolved]
